FAERS Safety Report 5552121-8 (Version None)
Quarter: 2007Q4

REPORT INFORMATION
  Report Type: 
  Country: None (occurrence: None)
  Receive Date: 20071210
  Receipt Date: 20071126
  Transmission Date: 20080405
  Serious: Yes (Hospitalization)
  Sender: FDA-Public Use
  Company Number: CIP07002484

PATIENT
  Age: 81 Year
  Sex: Female

DRUGS (5)
  1. FURADANTIN [Suspect]
     Dosage: ORAL
     Route: 048
     Dates: start: 20060817, end: 20061021
  2. INEXIUM /01479302/(ESOMEPRAZOLE MAGNESIUM) [Suspect]
     Dosage: ORAL
     Route: 048
     Dates: start: 20061014, end: 20061030
  3. TOPAAL(SILICA GEL, MAGNESIUM CARBONATE, ALUMINIUM HYDROXIDE GEL, ALGIN [Suspect]
     Dosage: ORAL
     Route: 048
     Dates: start: 20061014, end: 20061030
  4. BACTRIM [Concomitant]
  5. LERCANIDIPINE [Concomitant]

REACTIONS (5)
  - BLOOD IMMUNOGLOBULIN A INCREASED [None]
  - BLOOD IMMUNOGLOBULIN E INCREASED [None]
  - BLOOD IMMUNOGLOBULIN G INCREASED [None]
  - BLOOD IMMUNOGLOBULIN M INCREASED [None]
  - LEUKOCYTOCLASTIC VASCULITIS [None]
